FAERS Safety Report 17391755 (Version 1)
Quarter: 2020Q1

REPORT INFORMATION
  Report Type: Spontaneous
  Country: US (occurrence: US)
  Receive Date: 20200207
  Receipt Date: 20200207
  Transmission Date: 20200409
  Serious: No
  Sender: FDA-Public Use
  Company Number: US-ASTRAZENECA-2020SE04287

PATIENT
  Sex: Male
  Weight: 111.6 kg

DRUGS (12)
  1. FASENRA [Suspect]
     Active Substance: BENRALIZUMAB
     Indication: ASTHMA
     Route: 058
     Dates: start: 20191016
  2. SINGULAIR [Concomitant]
     Active Substance: MONTELUKAST SODIUM
  3. PRILOSEC [Concomitant]
     Active Substance: OMEPRAZOLE MAGNESIUM
  4. FLONASE [Concomitant]
     Active Substance: FLUTICASONE PROPIONATE
  5. QUETIAPINE. [Concomitant]
     Active Substance: QUETIAPINE
  6. SIMVASTATIN. [Concomitant]
     Active Substance: SIMVASTATIN
  7. WELLBUTRIN [Concomitant]
     Active Substance: BUPROPION HYDROCHLORIDE
  8. NIZORAL [Concomitant]
     Active Substance: KETOCONAZOLE
  9. VENTOLIN HFA [Concomitant]
     Active Substance: ALBUTEROL SULFATE
  10. LORSARTAN [Concomitant]
     Active Substance: LOSARTAN
  11. CLORAZAPITE [Concomitant]
  12. ANOROELLIPTA [Concomitant]

REACTIONS (1)
  - Pruritus [Not Recovered/Not Resolved]
